FAERS Safety Report 6609625-6 (Version None)
Quarter: 2010Q1

REPORT INFORMATION
  Report Type: 
  Country: None (occurrence: None)
  Receive Date: 20100302
  Receipt Date: 20100223
  Transmission Date: 20100710
  Serious: Yes (Hospitalization, Disabling, Other)
  Sender: FDA-Public Use
  Company Number: TR-BRISTOL-MYERS SQUIBB COMPANY-14963169

PATIENT
  Age: 51 Year
  Sex: Male
  Weight: 95 kg

DRUGS (1)
  1. BARACLUDE [Suspect]
     Indication: HEPATITIS B
     Dosage: INITIATED 11 MONTH AGO,STOP DATE:02FEB09. INTERRUPTED ON 2OCT2009
     Route: 048
     Dates: start: 20081201

REACTIONS (2)
  - BREAST CANCER [None]
  - HEPATIC NEOPLASM MALIGNANT [None]
